FAERS Safety Report 8200656 (Version 5)
Quarter: 2014Q2

REPORT INFORMATION
  Report Type: Report from Study
  Country: US (occurrence: US)
  Receive Date: 20111026
  Receipt Date: 20140326
  Transmission Date: 20141212
  Serious: Yes (Hospitalization)
  Sender: FDA-Public Use
  Company Number: US-ALEXION-A201101567

PATIENT
  Age: 40 Year
  Sex: Male

DRUGS (5)
  1. SOLIRIS [Suspect]
     Indication: PAROXYSMAL NOCTURNAL HAEMOGLOBINURIA
     Dosage: 600 MG, UNK
     Route: 042
     Dates: start: 20110826, end: 20110909
  2. SOLIRIS [Suspect]
     Dosage: 900 MG, Q2W
     Route: 042
     Dates: start: 20110916
  3. TYLENOL [Concomitant]
     Indication: PREMEDICATION
     Dosage: 650 MG UNK
     Route: 048
  4. SYNTHROID [Concomitant]
     Dosage: 200 UG, QD
  5. CALCIUM [Concomitant]
     Dosage: UNK, 1 CAPSULE QD

REACTIONS (13)
  - Thyroid cancer [Recovered/Resolved]
  - Condition aggravated [Recovered/Resolved]
  - Anaemia [Unknown]
  - Dizziness [Unknown]
  - Blood count abnormal [Unknown]
  - Weight decreased [Unknown]
  - Dysphagia [Not Recovered/Not Resolved]
  - Haemolysis [Not Recovered/Not Resolved]
  - Fatigue [Unknown]
  - Paroxysmal nocturnal haemoglobinuria [Unknown]
  - Haemoglobinuria [Recovered/Resolved]
  - Blood magnesium decreased [Unknown]
  - Blood calcium decreased [Unknown]
